FAERS Safety Report 19081922 (Version 1)
Quarter: 2021Q1

REPORT INFORMATION
  Report Type: Spontaneous
  Country: US (occurrence: US)
  Receive Date: 20210331
  Receipt Date: 20210331
  Transmission Date: 20210420
  Serious: Yes (Hospitalization)
  Sender: FDA-Public Use
  Company Number: None

PATIENT
  Sex: Male

DRUGS (15)
  1. TASIGNA [Suspect]
     Active Substance: NILOTINIB
     Indication: CHRONIC MYELOID LEUKAEMIA
     Route: 048
     Dates: start: 20150911
  2. DOCUSATE [Concomitant]
     Active Substance: DOCUSATE
  3. CALCIUM D [Concomitant]
     Active Substance: CALCIUM\VITAMIN D
  4. CONSUMER/OTHER NON HEALTH PROFESSIONAL [Concomitant]
  5. LORATADINE. [Concomitant]
     Active Substance: LORATADINE
  6. COMBIGAN [Concomitant]
     Active Substance: BRIMONIDINE TARTRATE\TIMOLOL MALEATE
  7. LUMIGAN [Concomitant]
     Active Substance: BIMATOPROST
  8. IRON [Concomitant]
     Active Substance: IRON
  9. IRBESARTAN. [Concomitant]
     Active Substance: IRBESARTAN
  10. NICARDIPINE [Concomitant]
     Active Substance: NICARDIPINE
  11. PROBIOTIC [Concomitant]
     Active Substance: PROBIOTICS NOS
  12. EYE OMEGA [Concomitant]
  13. LUTEIN [Concomitant]
     Active Substance: LUTEIN
  14. ADVIL [Concomitant]
     Active Substance: IBUPROFEN
  15. ATORVASTATIN [Concomitant]
     Active Substance: ATORVASTATIN

REACTIONS (1)
  - Cardiac failure congestive [None]
